FAERS Safety Report 13654796 (Version 1)
Quarter: 2017Q2

REPORT INFORMATION
  Report Type: Report from Study
  Country: US (occurrence: US)
  Receive Date: 20170615
  Receipt Date: 20170615
  Transmission Date: 20170830
  Serious: Yes (Death)
  Sender: FDA-Public Use
  Company Number: US-TORRENT-00002878

PATIENT
  Age: 8 Year
  Sex: Male

DRUGS (5)
  1. ATOMOXETINE HYDROCHLORIDE. [Suspect]
     Active Substance: ATOMOXETINE HYDROCHLORIDE
  2. LAMOTRIGINE. [Suspect]
     Active Substance: LAMOTRIGINE
  3. NORTRIPTYLINE HYDROCHLORIDE. [Suspect]
     Active Substance: NORTRIPTYLINE HYDROCHLORIDE
  4. TRAZODONE HYDROCHLORIDE. [Suspect]
     Active Substance: TRAZODONE HYDROCHLORIDE
  5. VALPROIC ACID. [Suspect]
     Active Substance: VALPROIC ACID

REACTIONS (2)
  - Cardio-respiratory arrest [Fatal]
  - Toxicity to various agents [Fatal]
